FAERS Safety Report 13738309 (Version 1)
Quarter: 2017Q3

REPORT INFORMATION
  Report Type: Report from Study
  Country: US (occurrence: US)
  Receive Date: 20170710
  Receipt Date: 20170710
  Transmission Date: 20171127
  Serious: Yes (Hospitalization)
  Sender: FDA-Public Use
  Company Number: US-EXELIXIS-XL18417009663

PATIENT
  Age: 79 Year
  Sex: Male
  Weight: 71.2 kg

DRUGS (1)
  1. XL184 [Suspect]
     Active Substance: CABOZANTINIB
     Indication: PANCREATIC NEUROENDOCRINE TUMOUR

REACTIONS (2)
  - Pneumonia [Unknown]
  - Dehydration [Unknown]

NARRATIVE: CASE EVENT DATE: 20170701
